FAERS Safety Report 4766921-5 (Version None)
Quarter: 2005Q3

REPORT INFORMATION
  Report Type: 
  Country: None (occurrence: None)
  Receive Date: 20050913
  Receipt Date: 20050906
  Transmission Date: 20060218
  Serious: Yes (Hospitalization)
  Sender: FDA-Public Use
  Company Number: JP-BOEHRINGER INGELHEIM PHARMACEUTICALS, INC.-2005-BP-15625NB

PATIENT
  Sex: Female

DRUGS (6)
  1. MICARDIS [Suspect]
     Indication: HYPERTENSION
     Route: 048
     Dates: start: 20041023
  2. RENIVACE [Concomitant]
     Route: 048
     Dates: start: 20040409
  3. TENORMIN [Concomitant]
     Route: 048
     Dates: start: 20040414
  4. ADALAT [Concomitant]
     Route: 048
     Dates: start: 20040414, end: 20050329
  5. CARDENALIN [Concomitant]
     Route: 048
     Dates: start: 20041126
  6. DIGOSIN [Concomitant]
     Route: 048
     Dates: start: 20040414, end: 20050329

REACTIONS (1)
  - PNEUMONIA [None]
